FAERS Safety Report 10453481 (Version 1)
Quarter: 2014Q3

REPORT INFORMATION
  Report Type: Report from Study
  Country: MX (occurrence: MX)
  Receive Date: 20140915
  Receipt Date: 20140915
  Transmission Date: 20150326
  Serious: Yes (Other)
  Sender: FDA-Public Use
  Company Number: PHHY2014MX119065

PATIENT
  Age: 68 Year
  Sex: Male

DRUGS (2)
  1. CO-DIOVAN [Suspect]
     Active Substance: HYDROCHLOROTHIAZIDE\VALSARTAN
     Indication: HYPERTENSION
     Dosage: 0.5 DF(80/12.5MG), BID (IN THE MORNING AND IN THE NIGHT)
     Route: 048
     Dates: end: 20140908
  2. BI EUGLUCON M [Concomitant]
     Indication: DIABETES MELLITUS
     Dosage: 1 DF, BID (IN THE MORNING AND AT NIGHT)
     Dates: start: 1999

REACTIONS (3)
  - General physical health deterioration [Recovered/Resolved]
  - Wrong technique in drug usage process [Recovered/Resolved]
  - Blood pressure increased [Recovered/Resolved]

NARRATIVE: CASE EVENT DATE: 201408
